FAERS Safety Report 8847152 (Version 1)
Quarter: 2012Q4

REPORT INFORMATION
  Report Type: Spontaneous
  Country: US (occurrence: None)
  Receive Date: 20121016
  Receipt Date: 20121016
  Transmission Date: 20130627
  Serious: Yes (Other)
  Sender: FDA-Public Use
  Company Number: None

PATIENT
  Sex: Female

DRUGS (1)
  1. EFFEXOR XR [Suspect]
     Indication: MAJOR DEPRESSIVE DISORDER, RECURRENT EPISODE
     Dosage: 75mg IIII qD oral
     Route: 048

REACTIONS (3)
  - Nausea [None]
  - Gastric disorder [None]
  - Product substitution issue [None]
